FAERS Safety Report 4643030-7 (Version None)
Quarter: 2005Q2

REPORT INFORMATION
  Report Type: 
  Country: None (occurrence: None)
  Receive Date: 20050422
  Receipt Date: 20050405
  Transmission Date: 20051028
  Serious: Yes (Hospitalization, Other)
  Sender: FDA-Public Use
  Company Number: 17679

PATIENT
  Age: 54 Year
  Sex: Female

DRUGS (1)
  1. ADRIAMYCIN PFS [Suspect]

REACTIONS (9)
  - BREAST CANCER RECURRENT [None]
  - CHEST PAIN [None]
  - DEEP VEIN THROMBOSIS [None]
  - DYSPNOEA [None]
  - NAUSEA [None]
  - NEUTROPENIA [None]
  - SEPSIS [None]
  - SUBCLAVIAN VEIN THROMBOSIS [None]
  - VOMITING [None]
